FAERS Safety Report 11270581 (Version 1)
Quarter: 2015Q3

REPORT INFORMATION
  Report Type: Spontaneous
  Country: AU (occurrence: AU)
  Receive Date: 20150714
  Receipt Date: 20150714
  Transmission Date: 20151125
  Serious: Yes (Hospitalization)
  Sender: FDA-Public Use
  Company Number: PHHY2015AU081777

PATIENT
  Age: 32 Year
  Sex: Female

DRUGS (1)
  1. IBUPROFEN TABLET [Suspect]
     Active Substance: IBUPROFEN
     Indication: SINUSITIS
     Route: 065

REACTIONS (3)
  - Vomiting [Unknown]
  - Diaphragmatic disorder [Unknown]
  - Abdominal pain [Unknown]
